FAERS Safety Report 23713177 (Version 1)
Quarter: 2024Q2

REPORT INFORMATION
  Report Type: Spontaneous
  Country: US (occurrence: None)
  Receive Date: 20240405
  Receipt Date: 20240405
  Transmission Date: 20240715
  Serious: No
  Sender: FDA-Public Use
  Company Number: None

PATIENT
  Age: 39 Year
  Sex: Male

DRUGS (2)
  1. MYCOPHENOLIC ACID [Suspect]
     Active Substance: MYCOPHENOLIC ACID
     Indication: Renal transplant
     Dosage: OTHER QUANTITY : 3 TABLETS;?FREQUENCY : DAILY;?
     Route: 048
     Dates: start: 202402
  2. TACROLIMUS [Concomitant]
     Active Substance: TACROLIMUS

REACTIONS (3)
  - Loss of consciousness [None]
  - Complications of transplant surgery [None]
  - Ulcer [None]

NARRATIVE: CASE EVENT DATE: 20240320
